FAERS Safety Report 21753864 (Version 1)
Quarter: 2022Q4

REPORT INFORMATION
  Report Type: Spontaneous
  Country: ES (occurrence: ES)
  Receive Date: 20221220
  Receipt Date: 20221220
  Transmission Date: 20230112
  Serious: Yes (Other)
  Sender: FDA-Public Use
  Company Number: None

PATIENT
  Age: 64 Year
  Sex: Female

DRUGS (8)
  1. DOCETAXEL [Suspect]
     Active Substance: DOCETAXEL
     Indication: Breast cancer
     Dosage: 137 MG
     Route: 042
     Dates: start: 20220321, end: 20220705
  2. ZALDIAR [Concomitant]
     Active Substance: ACETAMINOPHEN\TRAMADOL HYDROCHLORIDE
     Dosage: 1 DF, QD
     Route: 048
     Dates: start: 202207, end: 202207
  3. CANDESARTAN [Concomitant]
     Active Substance: CANDESARTAN
     Indication: Hypertension
     Dosage: 16 MG, QD
     Route: 048
     Dates: start: 20220407
  4. CALCIFEDIOL [Concomitant]
     Active Substance: CALCIFEDIOL
     Dosage: 0.26 MG, QM
     Route: 048
     Dates: start: 20210311
  5. DEXKETOPROFEN TROMETAMOL [Concomitant]
     Active Substance: DEXKETOPROFEN TROMETAMOL
     Dosage: 25 MG, QD
     Route: 048
     Dates: start: 20220407, end: 20220710
  6. CYCLOPHOSPHAMIDE [Concomitant]
     Active Substance: CYCLOPHOSPHAMIDE
     Indication: Breast cancer
     Dosage: 1098 MG
     Route: 042
     Dates: start: 20220321, end: 20220705
  7. ESOMEPRAZOLE SANDOZ [ESOMEPRAZOLE SODIUM] [Concomitant]
     Dosage: 20 MG, QD
     Route: 048
     Dates: start: 20220318
  8. LEVOTHYROXINE SODIUM [Concomitant]
     Active Substance: LEVOTHYROXINE SODIUM
     Indication: Hypothyroidism
     Dosage: 100 UG, QD
     Route: 048
     Dates: start: 20170222

REACTIONS (1)
  - Urticaria [Recovered/Resolved]
